FAERS Safety Report 22088539 (Version 3)
Quarter: 2023Q2

REPORT INFORMATION
  Report Type: Spontaneous
  Country: US (occurrence: US)
  Receive Date: 20230313
  Receipt Date: 20230407
  Transmission Date: 20230722
  Serious: No
  Sender: FDA-Public Use
  Company Number: US-BRISTOL-MYERS SQUIBB COMPANY-2023-034524

PATIENT
  Age: 63 Year
  Sex: Male
  Weight: 54.43 kg

DRUGS (7)
  1. ELIQUIS [Suspect]
     Active Substance: APIXABAN
     Indication: Thrombosis prophylaxis
     Route: 048
     Dates: start: 202302
  2. ELIQUIS [Suspect]
     Active Substance: APIXABAN
     Route: 048
     Dates: start: 20230217
  3. ZINC [Concomitant]
     Active Substance: ZINC
     Indication: Product used for unknown indication
  4. XANAX [Concomitant]
     Active Substance: ALPRAZOLAM
     Indication: Panic attack
  5. VITAMIN D3 [Concomitant]
     Active Substance: CHOLECALCIFEROL
     Indication: Product used for unknown indication
  6. VITAMIN B COMPLEX [Concomitant]
     Active Substance: CYANOCOBALAMIN\DEXPANTHENOL\NIACINAMIDE\PYRIDOXINE HYDROCHLORIDE\RIBOFLAVIN 5^-PHOSPHATE SODIUM\THIA
     Indication: Product used for unknown indication
  7. COPPER [Concomitant]
     Active Substance: COPPER
     Indication: Product used for unknown indication

REACTIONS (9)
  - Anxiety [Unknown]
  - Chest pain [Unknown]
  - Malaise [Unknown]
  - Headache [Unknown]
  - Retching [Unknown]
  - Bladder disorder [Unknown]
  - Dry skin [Unknown]
  - Skin laceration [Unknown]
  - Panic attack [Unknown]

NARRATIVE: CASE EVENT DATE: 20230201
